FAERS Safety Report 12319690 (Version 1)
Quarter: 2016Q2

REPORT INFORMATION
  Report Type: Spontaneous
  Country: US (occurrence: US)
  Receive Date: 20160429
  Receipt Date: 20160429
  Transmission Date: 20160815
  Serious: No
  Sender: FDA-Public Use
  Company Number: US-ROCHE-1605701

PATIENT
  Sex: Female
  Weight: 86.71 kg

DRUGS (3)
  1. ESBRIET [Suspect]
     Active Substance: PIRFENIDONE
     Indication: IDIOPATHIC PULMONARY FIBROSIS
     Route: 048
  2. ESBRIET [Suspect]
     Active Substance: PIRFENIDONE
     Route: 048
     Dates: start: 20150507
  3. ESBRIET [Suspect]
     Active Substance: PIRFENIDONE
     Route: 048

REACTIONS (10)
  - Urinary incontinence [Unknown]
  - Sensation of foreign body [Unknown]
  - Dyspnoea [Unknown]
  - Decreased appetite [Unknown]
  - Weight decreased [Unknown]
  - Oropharyngeal discomfort [Unknown]
  - Fatigue [Unknown]
  - Chest discomfort [Unknown]
  - Micturition urgency [Unknown]
  - Asthenia [Unknown]
